FAERS Safety Report 10173534 (Version 1)
Quarter: 2014Q2

REPORT INFORMATION
  Report Type: Spontaneous
  Country: US (occurrence: US)
  Receive Date: 20140515
  Receipt Date: 20140515
  Transmission Date: 20141212
  Serious: No
  Sender: FDA-Public Use
  Company Number: US-PFIZER INC-2014129273

PATIENT
  Age: 55 Year
  Sex: Female
  Weight: 48.07 kg

DRUGS (1)
  1. QUINAPRIL HCL [Suspect]
     Indication: HYPERTENSION
     Dosage: 10 MG, AS NEEDED

REACTIONS (1)
  - Hypotension [Unknown]
